FAERS Safety Report 26140178 (Version 1)
Quarter: 2025Q4

REPORT INFORMATION
  Report Type: Spontaneous
  Country: US (occurrence: US)
  Receive Date: 20251210
  Receipt Date: 20251210
  Transmission Date: 20260117
  Serious: Yes (Hospitalization, Other)
  Sender: MALLINCKRODT
  Company Number: US-MALLINCKRODT-MNK202507225

PATIENT
  Sex: Male

DRUGS (17)
  1. CORTICOTROPIN [Suspect]
     Active Substance: CORTICOTROPIN
     Indication: End stage renal disease
     Dosage: 40 UNITS
     Route: 058
  2. VITAMIN D3 [Concomitant]
     Active Substance: CHOLECALCIFEROL
     Dosage: 10(400)/ML
  3. FERROUS SULFATE [Concomitant]
     Active Substance: FERROUS SULFATE
     Dosage: UNKNOWN (325(65) MG)
  4. INSULIN LISPRO [Concomitant]
     Active Substance: INSULIN LISPRO
     Dosage: UNKNOWN
  5. GABAPENTIN [Concomitant]
     Active Substance: GABAPENTIN
     Dosage: UNKNOWN
  6. GLIPIZIDE [Concomitant]
     Active Substance: GLIPIZIDE
     Dosage: UNKNOWN
  7. FUROSEMIDE [Concomitant]
     Active Substance: FUROSEMIDE
     Dosage: UNKNOWN
  8. ATORVASTATIN CALCIUM [Concomitant]
     Active Substance: ATORVASTATIN CALCIUM
     Dosage: UNKNOWN
  9. VITAMINS NOS [Concomitant]
     Active Substance: VITAMINS
     Dosage: UNKNOWN (50 PLUS)
  10. CARVEDILOL [Concomitant]
     Active Substance: CARVEDILOL
     Dosage: UNKNOWN
  11. LOSARTAN POTASSIUM [Concomitant]
     Active Substance: LOSARTAN POTASSIUM
     Dosage: UNKNOWN
  12. PROTONIX [Concomitant]
     Active Substance: PANTOPRAZOLE SODIUM
     Dosage: UNKNOWN
  13. VALGANCICLOVIR HYDROCHLORIDE [Concomitant]
     Active Substance: VALGANCICLOVIR HYDROCHLORIDE
     Dosage: UNKNOWN
  14. PREDNISONE [Concomitant]
     Active Substance: PREDNISONE
     Dosage: UNKNOWN
  15. PROGRAF [Concomitant]
     Active Substance: TACROLIMUS
     Dosage: UNKNOWN
  16. ATOVAQUONE AND PROGUANIL HYDROCHLORIDE [Concomitant]
     Active Substance: ATOVAQUONE\PROGUANIL HYDROCHLORIDE
     Dosage: UNKNOWN
  17. PLASMA-PLEX [Concomitant]
     Active Substance: PLASMA PROTEIN FRACTION (HUMAN)
     Dosage: UNKNOWN

REACTIONS (5)
  - Cellulitis [Unknown]
  - Renal failure [Unknown]
  - Immune system disorder [Unknown]
  - Infection [Unknown]
  - Fluid retention [Unknown]
